FAERS Safety Report 17719708 (Version 2)
Quarter: 2022Q2

REPORT INFORMATION
  Report Type: Spontaneous
  Country: US (occurrence: None)
  Receive Date: 20200428
  Receipt Date: 20220602
  Transmission Date: 20220721
  Serious: Yes (Other)
  Sender: FDA-Public Use
  Company Number: 2020SE53588

PATIENT
  Age: 25530 Day
  Sex: Male
  Weight: 74.8 kg

DRUGS (51)
  1. PRILOSEC [Suspect]
     Active Substance: OMEPRAZOLE MAGNESIUM
     Indication: Gastrooesophageal reflux disease
     Dosage: GENRIC
     Route: 065
     Dates: start: 201206, end: 201611
  2. PRILOSEC [Suspect]
     Active Substance: OMEPRAZOLE MAGNESIUM
     Indication: Gastrooesophageal reflux disease
     Dosage: CAPSULE
     Route: 048
     Dates: start: 20140116
  3. PRILOSEC [Suspect]
     Active Substance: OMEPRAZOLE MAGNESIUM
     Indication: Gastrooesophageal reflux disease
     Dosage: GENRIC CAPSULE
     Route: 065
     Dates: start: 20161208
  4. PRILOSEC [Suspect]
     Active Substance: OMEPRAZOLE MAGNESIUM
     Indication: Gastrooesophageal reflux disease
     Dosage: CAPSULE
     Route: 048
     Dates: start: 20090107
  5. PRILOSEC [Suspect]
     Active Substance: OMEPRAZOLE MAGNESIUM
     Indication: Gastrooesophageal reflux disease
     Dosage: GENERIC CAPSULE
     Route: 065
     Dates: start: 20161208, end: 20180315
  6. PREVACID [Suspect]
     Active Substance: LANSOPRAZOLE
     Indication: Gastrooesophageal reflux disease
     Route: 065
     Dates: start: 200803, end: 20120223
  7. PREVACID [Suspect]
     Active Substance: LANSOPRAZOLE
     Indication: Gastrooesophageal reflux disease
     Dosage: GENERIC
     Route: 065
     Dates: start: 201110, end: 201206
  8. PREVACID [Suspect]
     Active Substance: LANSOPRAZOLE
     Indication: Gastrooesophageal reflux disease
     Route: 048
     Dates: start: 20110812
  9. GLIPIZIDE [Concomitant]
     Active Substance: GLIPIZIDE
     Indication: Diabetes mellitus
     Dates: start: 2017
  10. ALOGLIPTIN [Concomitant]
     Active Substance: ALOGLIPTIN
     Indication: Type 2 diabetes mellitus
     Dates: start: 2019
  11. ATORVASTATIN [Concomitant]
     Active Substance: ATORVASTATIN
     Indication: Blood cholesterol increased
     Dates: start: 201311
  12. METOPROLOL [Concomitant]
     Active Substance: METOPROLOL
     Indication: Hypertension
     Dates: start: 2019
  13. EFFEXOR [Concomitant]
     Active Substance: VENLAFAXINE HYDROCHLORIDE
     Indication: Depression
     Dates: start: 201906
  14. DOCUSATE SODIUM [Concomitant]
     Active Substance: DOCUSATE SODIUM
     Indication: Diarrhoea
     Dates: start: 201603
  15. FLUOXETINE [Concomitant]
     Active Substance: FLUOXETINE HYDROCHLORIDE
     Indication: Depression
     Dates: start: 200910, end: 201702
  16. ARIPIPRAZOLE [Concomitant]
     Active Substance: ARIPIPRAZOLE
     Indication: Bipolar disorder
     Dates: start: 201509, end: 201703
  17. AMLODIPINE [Concomitant]
     Active Substance: AMLODIPINE BESYLATE
     Indication: Hypertension
     Dates: start: 201311, end: 201708
  18. CLONAZEPAM [Concomitant]
     Active Substance: CLONAZEPAM
     Indication: Anxiety
     Dates: start: 200812, end: 201703
  19. WARFARIN [Concomitant]
     Active Substance: WARFARIN
     Indication: Anticoagulant therapy
     Dates: start: 201202, end: 201710
  20. TYLENOL [Concomitant]
     Active Substance: ACETAMINOPHEN
     Indication: Pain
     Dates: start: 2019
  21. CLONIDINE [Concomitant]
     Active Substance: CLONIDINE
  22. JALYN [Concomitant]
     Active Substance: DUTASTERIDE\TAMSULOSIN HYDROCHLORIDE
  23. VITAMIN E [Concomitant]
     Active Substance: .ALPHA.-TOCOPHEROL
  24. BENICAR [Concomitant]
     Active Substance: OLMESARTAN MEDOXOMIL
  25. HYDROCORTISONE [Concomitant]
     Active Substance: HYDROCORTISONE
  26. HERBALS\SAW PALMETTO [Concomitant]
     Active Substance: HERBALS\SAW PALMETTO
  27. ANDROGEL [Concomitant]
     Active Substance: TESTOSTERONE
  28. PROMETHAZINE [Concomitant]
     Active Substance: PROMETHAZINE HYDROCHLORIDE
  29. GLYCOLIC ACID [Concomitant]
     Active Substance: GLYCOLIC ACID
  30. NITROSTAT [Concomitant]
     Active Substance: NITROGLYCERIN
  31. FLUDROCORTISONE [Concomitant]
     Active Substance: FLUDROCORTISONE
  32. LUNESTA [Concomitant]
     Active Substance: ESZOPICLONE
  33. ASPIRIN [Concomitant]
     Active Substance: ASPIRIN
  34. OMEGA 3 [Concomitant]
     Active Substance: CAPSAICIN
  35. ALIGN [Concomitant]
     Active Substance: BIFIDOBACTERIUM LONGUM SUBSP. INFANTIS
  36. OXYCONTIN [Concomitant]
     Active Substance: OXYCODONE HYDROCHLORIDE
  37. HIGH DENSITY POLYETHYLENE [Concomitant]
     Active Substance: HIGH DENSITY POLYETHYLENE
  38. NIACIN [Concomitant]
     Active Substance: NIACIN
  39. BENADRYL [Concomitant]
     Active Substance: DIPHENHYDRAMINE HYDROCHLORIDE
  40. LIDODERM [Concomitant]
     Active Substance: LIDOCAINE
  41. PROZAC [Concomitant]
     Active Substance: FLUOXETINE HYDROCHLORIDE
  42. BYSTOLIC [Concomitant]
     Active Substance: NEBIVOLOL HYDROCHLORIDE
  43. SIMVASTATIN [Concomitant]
     Active Substance: SIMVASTATIN
  44. ASCORBIC ACID [Concomitant]
     Active Substance: ASCORBIC ACID
  45. OLMESARTAN [Concomitant]
     Active Substance: OLMESARTAN
  46. IBUPROFEN [Concomitant]
     Active Substance: IBUPROFEN
  47. COREG [Concomitant]
     Active Substance: CARVEDILOL
  48. ZIPRASIDONE [Concomitant]
     Active Substance: ZIPRASIDONE
  49. MECLIZINE [Concomitant]
     Active Substance: MECLIZINE HYDROCHLORIDE
  50. TORSEMIDE [Concomitant]
     Active Substance: TORSEMIDE
  51. TEMAZEPAM [Concomitant]
     Active Substance: TEMAZEPAM

REACTIONS (7)
  - Acute kidney injury [Not Recovered/Not Resolved]
  - Chronic kidney disease [Not Recovered/Not Resolved]
  - Nephrogenic anaemia [Unknown]
  - Chronic kidney disease-mineral and bone disorder [Unknown]
  - Renal failure [Not Recovered/Not Resolved]
  - Renal impairment [Unknown]
  - Tubulointerstitial nephritis [Unknown]

NARRATIVE: CASE EVENT DATE: 20110812
